FAERS Safety Report 16000523 (Version 1)
Quarter: 2019Q1

REPORT INFORMATION
  Report Type: Report from Study
  Country: BE (occurrence: BE)
  Receive Date: 20190225
  Receipt Date: 20190225
  Transmission Date: 20190418
  Serious: Yes (Other)
  Sender: FDA-Public Use
  Company Number: BE-MYLANLABS-2019M1015450

PATIENT
  Sex: Female
  Weight: 61 kg

DRUGS (27)
  1. BEVACIZUMAB. [Suspect]
     Active Substance: BEVACIZUMAB
     Dosage: 842 MILLIGRAM, Q3W
     Route: 042
     Dates: start: 20160503
  2. BEVACIZUMAB. [Suspect]
     Active Substance: BEVACIZUMAB
     Dosage: 842 MILLIGRAM, Q3W
     Route: 042
     Dates: start: 20160524
  3. BEVACIZUMAB. [Suspect]
     Active Substance: BEVACIZUMAB
     Dosage: 915 MILLIGRAM, Q3W
     Route: 042
     Dates: start: 20151120
  4. CARBOPLATIN. [Suspect]
     Active Substance: CARBOPLATIN
     Dosage: 5 AUC
     Route: 042
     Dates: start: 20151210
  5. CISPLATIN. [Suspect]
     Active Substance: CISPLATIN
     Indication: OVARIAN CANCER
     Dosage: UNK
     Route: 042
  6. ASAFLOW [Concomitant]
     Active Substance: ASPIRIN
     Dosage: UNK
     Route: 065
     Dates: start: 20161018
  7. PROLOPA [Concomitant]
     Active Substance: BENSERAZIDE\LEVODOPA
     Dosage: UNK
     Route: 065
     Dates: start: 20160913
  8. BEVACIZUMAB. [Suspect]
     Active Substance: BEVACIZUMAB
     Dosage: 923 MILLIGRAM, Q3W
     Route: 042
     Dates: start: 20160104
  9. BEVACIZUMAB. [Suspect]
     Active Substance: BEVACIZUMAB
     Dosage: 830 MILLIGRAM, Q3W
     Route: 042
     Dates: start: 20160614
  10. ZOPICLONE [Concomitant]
     Active Substance: ZOPICLONE
     Dosage: UNK
     Route: 065
     Dates: start: 2010
  11. PACLITAXEL. [Suspect]
     Active Substance: PACLITAXEL
     Dosage: 175 MILLIGRAM/SQ. METER, Q3W
     Route: 042
     Dates: start: 20160104
  12. CARBOPLATIN. [Suspect]
     Active Substance: CARBOPLATIN
     Indication: OVARIAN CANCER
     Dosage: 5 AUC
     Route: 042
     Dates: start: 20160503, end: 20160503
  13. PACLITAXEL. [Suspect]
     Active Substance: PACLITAXEL
     Dosage: 175 MILLIGRAM/SQ. METER, Q3W
     Route: 042
     Dates: start: 20151210
  14. PERIO-AID [Concomitant]
     Dosage: UNK
     Route: 065
     Dates: start: 20160714
  15. DAFLON                             /01026201/ [Concomitant]
     Active Substance: DIOSMIN\HESPERIDIN
     Dosage: UNK
     Route: 065
     Dates: start: 20161021
  16. VESICARE [Concomitant]
     Active Substance: SOLIFENACIN SUCCINATE
     Dosage: UNK
     Route: 065
     Dates: start: 20161116
  17. PACLITAXEL. [Suspect]
     Active Substance: PACLITAXEL
     Dosage: 175 MILLIGRAM/SQ. METER, Q3W
     Route: 042
     Dates: start: 20160503, end: 20160503
  18. PACLITAXEL. [Suspect]
     Active Substance: PACLITAXEL
     Dosage: 175 MILLIGRAM/SQ. METER, Q3W
     Route: 042
     Dates: start: 20160414
  19. BEVACIZUMAB. [Suspect]
     Active Substance: BEVACIZUMAB
     Indication: PRODUCT USED FOR UNKNOWN INDICATION
     Dosage: 821 MILLIGRAM
     Route: 042
     Dates: start: 20160414
  20. CARBOPLATIN. [Suspect]
     Active Substance: CARBOPLATIN
     Dosage: 5 AUC
     Route: 042
     Dates: start: 20151120, end: 20151210
  21. CARBOPLATIN. [Suspect]
     Active Substance: CARBOPLATIN
     Dosage: 5 AUC
     Route: 042
     Dates: start: 20160104
  22. FORLAX [Concomitant]
     Active Substance: POLYETHYLENE GLYCOL 4000
     Dosage: UNK
  23. LOPERAMIDE [Concomitant]
     Active Substance: LOPERAMIDE
     Dosage: UNK
     Route: 065
     Dates: start: 20161209
  24. CETAVLEX                           /06836501/ [Concomitant]
     Dosage: UNK
     Route: 065
     Dates: start: 20151126, end: 20151126
  25. ANTIMETIL [Concomitant]
     Dosage: UNK
     Route: 065
     Dates: start: 20160517
  26. PACLITAXEL. [Suspect]
     Active Substance: PACLITAXEL
     Indication: OVARIAN CANCER
     Dosage: 175 MILLIGRAM/SQ. METER, Q3W
     Route: 042
     Dates: start: 20151120, end: 20151210
  27. CARBOPLATIN. [Suspect]
     Active Substance: CARBOPLATIN
     Dosage: 5 AUC
     Route: 042
     Dates: start: 20160414

REACTIONS (16)
  - Epistaxis [Recovered/Resolved]
  - Ingrowing nail [Recovered/Resolved]
  - Anaemia [Recovered/Resolved]
  - Disturbance in attention [Not Recovered/Not Resolved]
  - Diarrhoea [Not Recovered/Not Resolved]
  - Oedema peripheral [Not Recovered/Not Resolved]
  - Polyneuropathy [Not Recovered/Not Resolved]
  - Tooth fracture [Recovered/Resolved]
  - Dyspepsia [Recovered/Resolved]
  - Parkinson^s disease [Not Recovered/Not Resolved]
  - Neutropenia [Recovered/Resolved]
  - Epistaxis [Recovered/Resolved]
  - Urge incontinence [Not Recovered/Not Resolved]
  - Tooth infection [Recovered/Resolved]
  - Lymphocele [Recovered/Resolved]
  - Alopecia [Recovered/Resolved]

NARRATIVE: CASE EVENT DATE: 20151202
